FAERS Safety Report 16664382 (Version 5)
Quarter: 2022Q3

REPORT INFORMATION
  Report Type: Report from Study
  Country: JP (occurrence: JP)
  Receive Date: 20190802
  Receipt Date: 20220801
  Transmission Date: 20221027
  Serious: Yes (Other)
  Sender: FDA-Public Use
  Company Number: JP-JT-EVA201802435GILEAD-001

PATIENT
  Age: 32 Year
  Sex: Male

DRUGS (6)
  1. EMTRICITABINE\TENOFOVIR [Suspect]
     Active Substance: EMTRICITABINE\TENOFOVIR
     Indication: HIV infection
     Dosage: 1 DF, QD
     Route: 048
     Dates: start: 20170619
  2. TIVICAY [Suspect]
     Active Substance: DOLUTEGRAVIR SODIUM
     Indication: HIV infection
     Dosage: 1 DOSAGE FORM, QD
     Route: 048
     Dates: start: 20170619
  3. VARENICLINE TARTRATE [Suspect]
     Active Substance: VARENICLINE TARTRATE
     Indication: Nicotine dependence
     Dosage: UNK
     Route: 065
     Dates: start: 20200629, end: 20200917
  4. ALLEGRA [Concomitant]
     Active Substance: FEXOFENADINE HYDROCHLORIDE
     Indication: Seasonal allergy
     Dosage: UNK
     Dates: start: 20200331, end: 20200530
  5. ALLEGRA [Concomitant]
     Active Substance: FEXOFENADINE HYDROCHLORIDE
     Dosage: UNK
     Dates: start: 20210305, end: 20220603
  6. ALESION [Concomitant]
     Active Substance: EPINASTINE HYDROCHLORIDE
     Dosage: UNK
     Dates: start: 20210305, end: 20220603

REACTIONS (10)
  - Oropharyngeal gonococcal infection [Recovering/Resolving]
  - Pharyngitis [Recovering/Resolving]
  - Beta 2 microglobulin urine increased [Recovered/Resolved]
  - Blood creatinine increased [Recovering/Resolving]
  - Syphilis [Recovering/Resolving]
  - Syphilis [Recovering/Resolving]
  - Nausea [Recovering/Resolving]
  - Chlamydial infection [Recovering/Resolving]
  - Nicotine dependence [Not Recovered/Not Resolved]
  - Nausea [Recovered/Resolved]

NARRATIVE: CASE EVENT DATE: 20170619
